FAERS Safety Report 12820647 (Version 1)
Quarter: 2016Q4

REPORT INFORMATION
  Report Type: Spontaneous
  Country: DE (occurrence: DE)
  Receive Date: 20161006
  Receipt Date: 20161006
  Transmission Date: 20170207
  Serious: Yes (Other)
  Sender: FDA-Public Use
  Company Number: DE-INCYTE CORPORATION-2016IN006321

PATIENT
  Sex: Female
  Weight: 50 kg

DRUGS (7)
  1. BISO LICH [Concomitant]
     Active Substance: BISOPROLOL
     Indication: HYPERTENSION
     Dosage: 0.5 DF,  ? DF IN THE EVENING
     Route: 065
     Dates: start: 2001
  2. JAKAVI [Suspect]
     Active Substance: RUXOLITINIB
     Indication: MYELOFIBROSIS
     Dosage: 1 DF, BID (5 MG)
     Route: 065
     Dates: start: 20160823, end: 201608
  3. EUTHYROX [Concomitant]
     Active Substance: LEVOTHYROXINE SODIUM
     Indication: AUTOIMMUNE THYROIDITIS
     Dosage: 125 UG (1 DF), QD
     Route: 065
     Dates: start: 1986
  4. CALCIUM + VIT D [Concomitant]
     Active Substance: CALCIUM\VITAMIN D
     Indication: OSTEOPOROSIS
     Dosage: 1 DF (600 MG (CALCIUM) + 400 IU (VITAMIN D)), QW
     Route: 065
     Dates: start: 2006
  5. JAKAVI [Suspect]
     Active Substance: RUXOLITINIB
     Dosage: ALTERNATING 10 MG AND 5 MG IN THE MORNING AND 5 MG, QOD
     Route: 065
     Dates: start: 201608
  6. ASPIRIN. [Concomitant]
     Active Substance: ASPIRIN
     Indication: CARDIOVASCULAR DISORDER
     Dosage: 1 DF (100 MG), (1 DF EVERY TWO DAYS)
     Route: 065
     Dates: start: 2009
  7. DEKRISTOL [Concomitant]
     Active Substance: CHOLECALCIFEROL
     Indication: OSTEOPOROSIS
     Dosage: 20000 IU (1 DF), (PER MONTHS)
     Route: 065
     Dates: start: 2006

REACTIONS (4)
  - Haematocrit increased [Recovering/Resolving]
  - Platelet count increased [Recovering/Resolving]
  - Red blood cell count increased [Recovering/Resolving]
  - White blood cell count increased [Recovering/Resolving]

NARRATIVE: CASE EVENT DATE: 20160908
